FAERS Safety Report 9949208 (Version 7)
Quarter: 2015Q2

REPORT INFORMATION
  Report Type: Report from Study
  Country: BE (occurrence: BE)
  Receive Date: 20140304
  Receipt Date: 20150501
  Transmission Date: 20150821
  Serious: Yes (Death, Life-Threatening, Hospitalization)
  Sender: FDA-Public Use
  Company Number: BE-ROCHE-1336422

PATIENT
  Age: 56 Year
  Sex: Female
  Weight: 87 kg

DRUGS (6)
  1. OBINUTUZUMAB [Suspect]
     Active Substance: OBINUTUZUMAB
     Indication: DIFFUSE LARGE B-CELL LYMPHOMA
     Dosage: DATE OF LAST DOSE PRIOR TO SAE: 10/JAN/2014
     Route: 065
     Dates: start: 20140110, end: 20140116
  2. BLEOMYCIN [Suspect]
     Active Substance: BLEOMYCIN SULFATE
     Indication: LYMPHOID TISSUE HYPERPLASIA
     Route: 065
     Dates: start: 20140110, end: 20140117
  3. CYCLOPHOSPHAMIDE. [Suspect]
     Active Substance: CYCLOPHOSPHAMIDE
     Indication: LYMPHOID TISSUE HYPERPLASIA
     Route: 065
     Dates: start: 20140110, end: 20140117
  4. VINDESINE [Suspect]
     Active Substance: VINDESINE
     Indication: LYMPHOID TISSUE HYPERPLASIA
     Route: 065
     Dates: start: 20140110, end: 20140117
  5. PREDNISONE. [Suspect]
     Active Substance: PREDNISONE
     Indication: LYMPHOID TISSUE HYPERPLASIA
     Route: 065
     Dates: start: 20140110, end: 20140117
  6. DOXORUBICIN [Suspect]
     Active Substance: DOXORUBICIN
     Indication: LYMPHOID TISSUE HYPERPLASIA
     Route: 065
     Dates: start: 20140110, end: 20140117

REACTIONS (6)
  - Neutropenia [Recovered/Resolved]
  - Thrombocytopenia [Not Recovered/Not Resolved]
  - Acute respiratory distress syndrome [Fatal]
  - Septic shock [Recovered/Resolved]
  - Leukopenia [Recovered/Resolved]
  - Neutropenic colitis [Recovered/Resolved]

NARRATIVE: CASE EVENT DATE: 20140117
